FAERS Safety Report 4291569-9 (Version None)
Quarter: 2004Q1

REPORT INFORMATION
  Report Type: 
  Country: None (occurrence: None)
  Receive Date: 20040211
  Receipt Date: 20030926
  Transmission Date: 20041129
  Serious: Yes (Other)
  Sender: FDA-Public Use
  Company Number: US-GLAXOSMITHKLINE-A0427697A

PATIENT
  Age: 44 Year
  Sex: Male

DRUGS (5)
  1. IMITREX [Suspect]
     Indication: CLUSTER HEADACHE
     Dosage: 1INJ AS REQUIRED
     Route: 058
  2. TOPAMAX [Concomitant]
  3. NEURONTIN [Concomitant]
  4. DEPAKOTE [Concomitant]
  5. DEXEDRINE [Concomitant]

REACTIONS (1)
  - LOSS OF CONSCIOUSNESS [None]
